FAERS Safety Report 21258010 (Version 2)
Quarter: 2022Q4

REPORT INFORMATION
  Report Type: Report from Study
  Country: ES (occurrence: None)
  Receive Date: 20220826
  Receipt Date: 20221008
  Transmission Date: 20230113
  Serious: Yes (Hospitalization)
  Sender: FDA-Public Use
  Company Number: ES-ROCHE-3164838

PATIENT
  Age: 69 Year
  Sex: Male

DRUGS (3)
  1. ATEZOLIZUMAB [Suspect]
     Active Substance: ATEZOLIZUMAB
     Indication: Bladder transitional cell carcinoma
     Dosage: DATE OF LAST ADMINISTRATION BEFORE EVENT 14/JUL/2022 LAST DOSE ADMINISTERED BEFORE EVENT 1200 MG. 5
     Route: 042
     Dates: start: 20220420, end: 20220714
  2. BCG-MEDAC [Suspect]
     Active Substance: BACILLUS CALMETTE-GUERIN ANTIGEN, UNSPECIFIED SUBSTRAIN
     Indication: Bladder transitional cell carcinoma
     Dosage: LAST DOSE ADMINISTERED BEFORE ADVERSE EVENT: 28/JUL/2022 LAST DOSE ADMINISTERED BEFORE ADVERSE EVENT
     Route: 065
     Dates: start: 20220421, end: 20220728
  3. METFORMIN [Concomitant]
     Active Substance: METFORMIN HYDROCHLORIDE
     Route: 048

REACTIONS (1)
  - Muscle rupture [Recovering/Resolving]

NARRATIVE: CASE EVENT DATE: 20220730
